FAERS Safety Report 10042995 (Version 2)
Quarter: 2014Q2

REPORT INFORMATION
  Report Type: Not Available
  Country: FR (occurrence: FR)
  Receive Date: 20140328
  Receipt Date: 20140403
  Transmission Date: 20141212
  Serious: Yes (Hospitalization)
  Sender: FDA-Public Use
  Company Number: FR-BEH-2014041261

PATIENT
  Age: 49 Year
  Sex: Male

DRUGS (1)
  1. PRIVIGEN [Suspect]
     Indication: DEMYELINATING POLYNEUROPATHY
     Dosage: 10TH IV IMMUNOGLOBULIN TREATMENT
     Route: 042
     Dates: start: 20140128, end: 20140131

REACTIONS (5)
  - Deafness unilateral [Not Recovered/Not Resolved]
  - Tinnitus [Recovered/Resolved]
  - Ear pain [Recovered/Resolved]
  - Headache [Recovered/Resolved]
  - Hyperproteinaemia [Unknown]
